FAERS Safety Report 17375118 (Version 1)
Quarter: 2020Q1

REPORT INFORMATION
  Report Type: Spontaneous
  Country: US (occurrence: US)
  Receive Date: 20200204
  Receipt Date: 20200204
  Transmission Date: 20200409
  Serious: Yes (Death)
  Sender: FDA-Public Use
  Company Number: None

PATIENT
  Age: 51 Year
  Sex: Male

DRUGS (1)
  1. REPATHA [Suspect]
     Active Substance: EVOLOCUMAB
     Indication: ESSENTIAL HYPERTENSION
     Dosage: ?          OTHER FREQUENCY:1X EVERY TWO WEEKS;?
     Route: 058
     Dates: start: 20190827, end: 20200204

REACTIONS (1)
  - Death [None]

NARRATIVE: CASE EVENT DATE: 20200204
